FAERS Safety Report 8020507-8 (Version None)
Quarter: 2012Q1

REPORT INFORMATION
  Report Type: 
  Country: None (occurrence: None)
  Receive Date: 20120103
  Receipt Date: 20111220
  Transmission Date: 20120608
  Serious: Yes (Other)
  Sender: FDA-Public Use
  Company Number: US-ROCHE-784527

PATIENT
  Sex: Male
  Weight: 74.91 kg

DRUGS (2)
  1. ACCUTANE [Suspect]
     Indication: ACNE
     Route: 048
     Dates: start: 19990114, end: 19990603
  2. ACCUTANE [Suspect]
     Route: 048
     Dates: start: 20000126, end: 20000702

REACTIONS (8)
  - INFLAMMATORY BOWEL DISEASE [None]
  - COLITIS ULCERATIVE [None]
  - CONJUNCTIVITIS [None]
  - EMOTIONAL DISTRESS [None]
  - HAEMORRHOIDS [None]
  - OTITIS MEDIA [None]
  - PROCTITIS ULCERATIVE [None]
  - DEPRESSION [None]
